FAERS Safety Report 10861036 (Version 1)
Quarter: 2015Q1

REPORT INFORMATION
  Report Type: Spontaneous
  Country: DE (occurrence: DE)
  Receive Date: 20150224
  Receipt Date: 20150224
  Transmission Date: 20150721
  Serious: Yes (Other)
  Sender: FDA-Public Use
  Company Number: DE-BIOGENIDEC-2015BI019344

PATIENT
  Age: 0 Day
  Sex: Female
  Weight: 2 kg

DRUGS (4)
  1. IBUPROFEN. [Concomitant]
     Active Substance: IBUPROFEN
     Indication: ADVERSE DRUG REACTION
     Route: 064
     Dates: end: 20141024
  2. AVONEX [Suspect]
     Active Substance: INTERFERON BETA-1A
     Indication: MATERNAL EXPOSURE TIMING UNSPECIFIED
     Route: 064
     Dates: start: 20140109, end: 20141024
  3. PREDNISOLONE. [Concomitant]
     Active Substance: PREDNISOLONE
     Indication: MULTIPLE SCLEROSIS RELAPSE
     Route: 064
     Dates: start: 20140130, end: 20140201
  4. FOLIC ACID. [Concomitant]
     Active Substance: FOLIC ACID
     Indication: VITAMIN SUPPLEMENTATION
     Route: 064

REACTIONS (4)
  - Foetal exposure during pregnancy [Unknown]
  - Atrial septal defect [Unknown]
  - Pulmonary valve stenosis [Not Recovered/Not Resolved]
  - Small for dates baby [Recovered/Resolved]

NARRATIVE: CASE EVENT DATE: 20140109
